FAERS Safety Report 8198391-1 (Version None)
Quarter: 2012Q1

REPORT INFORMATION
  Report Type: 
  Country: None (occurrence: None)
  Receive Date: 20120309
  Receipt Date: 20120305
  Transmission Date: 20120608
  Serious: No
  Sender: FDA-Public Use
  Company Number: US-PFIZER INC-2012058835

PATIENT
  Sex: Male

DRUGS (3)
  1. LATANOPROST [Suspect]
     Dosage: UNK
     Route: 047
  2. XALATAN [Suspect]
     Dosage: UNK
     Route: 047
  3. VISINE EYE DROPS [Suspect]
     Dosage: UNK
     Route: 047

REACTIONS (3)
  - OCULAR HYPERAEMIA [None]
  - EYE ALLERGY [None]
  - DRY EYE [None]
